FAERS Safety Report 21284126 (Version 21)
Quarter: 2025Q4

REPORT INFORMATION
  Report Type: Report from Study
  Country: US (occurrence: US)
  Receive Date: 20220902
  Receipt Date: 20251018
  Transmission Date: 20260118
  Serious: Yes (Hospitalization, Other)
  Sender: TAKEDA
  Company Number: US-TAKEDA-US202007315

PATIENT
  Sex: Female
  Weight: 91 kg

DRUGS (42)
  1. HUMAN IMMUNOGLOBULIN G [Suspect]
     Active Substance: HUMAN IMMUNOGLOBULIN G
     Indication: Primary immunodeficiency syndrome
     Dosage: UNK UNK, Q4WEEKS
  2. HUMAN IMMUNOGLOBULIN G [Suspect]
     Active Substance: HUMAN IMMUNOGLOBULIN G
     Indication: Immunodeficiency common variable
     Dosage: 80 GRAM, MONTHLY
  3. HUMAN IMMUNOGLOBULIN G [Suspect]
     Active Substance: HUMAN IMMUNOGLOBULIN G
     Dosage: 50 GRAM, Q3WEEKS
  4. HUMAN IMMUNOGLOBULIN G [Suspect]
     Active Substance: HUMAN IMMUNOGLOBULIN G
     Dosage: 50 GRAM
  5. HUMAN IMMUNOGLOBULIN G [Suspect]
     Active Substance: HUMAN IMMUNOGLOBULIN G
     Dosage: 50 GRAM
  6. HUMAN IMMUNOGLOBULIN G [Suspect]
     Active Substance: HUMAN IMMUNOGLOBULIN G
     Dosage: 40 GRAM
  7. HUMAN IMMUNOGLOBULIN G [Suspect]
     Active Substance: HUMAN IMMUNOGLOBULIN G
     Dosage: UNK
  8. HUMAN IMMUNOGLOBULIN G [Suspect]
     Active Substance: HUMAN IMMUNOGLOBULIN G
     Dosage: 35 GRAM
  9. GAMMAGARD S/D [Suspect]
     Active Substance: HUMAN IMMUNOGLOBULIN G
     Indication: Immunodeficiency common variable
     Dosage: UNK
  10. GAMMAGARD S/D [Suspect]
     Active Substance: HUMAN IMMUNOGLOBULIN G
     Indication: Primary immunodeficiency syndrome
  11. DICYCLOMINE HYDROCHLORIDE [Concomitant]
     Active Substance: DICYCLOMINE HYDROCHLORIDE
     Dosage: UNK
  12. LIDOCAINE [Concomitant]
     Active Substance: LIDOCAINE
     Dosage: UNK
  13. XIIDRA [Concomitant]
     Active Substance: LIFITEGRAST
     Dosage: UNK
  14. METHOCARBAMOL [Concomitant]
     Active Substance: METHOCARBAMOL
     Dosage: UNK
  15. MELOXICAM [Concomitant]
     Active Substance: MELOXICAM
     Dosage: UNK
  16. EPINEPHRINE [Concomitant]
     Active Substance: EPINEPHRINE
     Dosage: UNK
  17. CLEOCIN [Concomitant]
     Active Substance: CLINDAMYCIN PHOSPHATE
     Dosage: UNK
  18. ENBREL [Concomitant]
     Active Substance: ETANERCEPT
     Dosage: UNK
  19. NYSTATIN [Concomitant]
     Active Substance: NYSTATIN
     Dosage: UNK
  20. PRAZOSIN HYDROCHLORIDE [Concomitant]
     Active Substance: PRAZOSIN HYDROCHLORIDE
     Dosage: UNK
  21. TIZANIDINE HYDROCHLORIDE [Concomitant]
     Active Substance: TIZANIDINE HYDROCHLORIDE
     Dosage: UNK
  22. ADVAIR HFA [Concomitant]
     Active Substance: FLUTICASONE PROPIONATE\SALMETEROL XINAFOATE
     Dosage: UNK
  23. SPIRIVA [Concomitant]
     Active Substance: TIOTROPIUM BROMIDE MONOHYDRATE
     Dosage: UNK
  24. NALOXONE HCL [Concomitant]
     Active Substance: NALOXONE HYDROCHLORIDE
     Dosage: UNK
  25. CONCERTA [Concomitant]
     Active Substance: METHYLPHENIDATE HYDROCHLORIDE
     Dosage: UNK
  26. FLUOCINOLONE ACETONIDE [Concomitant]
     Active Substance: FLUOCINOLONE ACETONIDE
     Dosage: UNK
  27. ONDANSETRON [Concomitant]
     Active Substance: ONDANSETRON
     Dosage: UNK
  28. ALBUTEROL SULFATE [Concomitant]
     Active Substance: ALBUTEROL SULFATE
     Dosage: UNK
  29. FAMOTIDINE [Concomitant]
     Active Substance: FAMOTIDINE
     Dosage: UNK
  30. NAPROXEN [Concomitant]
     Active Substance: NAPROXEN
     Dosage: UNK
  31. XANAX [Concomitant]
     Active Substance: ALPRAZOLAM
     Dosage: UNK
  32. LOTEPREDNOL [Concomitant]
     Active Substance: LOTEPREDNOL
     Dosage: UNK
  33. MODAFINIL [Concomitant]
     Active Substance: MODAFINIL
     Dosage: UNK
  34. MUPIROCIN [Concomitant]
     Active Substance: MUPIROCIN
     Dosage: UNK
  35. MORPHINE SULFATE [Concomitant]
     Active Substance: MORPHINE SULFATE
     Dosage: UNK
  36. IBUPROFEN [Concomitant]
     Active Substance: IBUPROFEN
     Dosage: UNK
  37. OXYCODONE HYDROCHLORIDE [Concomitant]
     Active Substance: OXYCODONE HYDROCHLORIDE
     Dosage: UNK
  38. ESTRADIOL [Concomitant]
     Active Substance: ESTRADIOL
     Dosage: UNK
  39. ACETAMINOPHEN [Concomitant]
     Active Substance: ACETAMINOPHEN
     Dosage: UNK
  40. DIPHENHYDRAMINE HYDROCHLORIDE [Concomitant]
     Active Substance: DIPHENHYDRAMINE HYDROCHLORIDE
     Dosage: UNK
  41. SODIUM CHLORIDE [Concomitant]
     Active Substance: SODIUM CHLORIDE
     Dosage: UNK
  42. SODIUM CHLORIDE [Concomitant]
     Active Substance: SODIUM CHLORIDE
     Dosage: UNK

REACTIONS (38)
  - Psoriatic arthropathy [Unknown]
  - Intervertebral disc protrusion [Unknown]
  - Diverticulitis [Unknown]
  - Chest pain [Unknown]
  - Abdominal pain upper [Unknown]
  - Addison^s disease [Unknown]
  - Cushing^s syndrome [Unknown]
  - Inappropriate schedule of product administration [Unknown]
  - Vertigo [Unknown]
  - Malaise [Recovering/Resolving]
  - Headache [Recovered/Resolved]
  - Gallbladder disorder [Unknown]
  - Localised infection [Unknown]
  - Brain fog [Unknown]
  - Illness [Unknown]
  - Dermatitis contact [Unknown]
  - Refusal of treatment by patient [Unknown]
  - Back disorder [Unknown]
  - Musculoskeletal discomfort [Unknown]
  - Road traffic accident [Unknown]
  - Muscle strain [Unknown]
  - Gait disturbance [Unknown]
  - Walking aid user [Unknown]
  - Sleep apnoea syndrome [Unknown]
  - Hot flush [Unknown]
  - Muscular weakness [Unknown]
  - Asthenia [Unknown]
  - Anxiety [Unknown]
  - Oedema [Unknown]
  - Paraesthesia [Unknown]
  - Infusion site pain [Unknown]
  - Nausea [Recovering/Resolving]
  - Insurance issue [Unknown]
  - Pituitary-dependent Cushing^s syndrome [Unknown]
  - Weight decreased [Unknown]
  - Product use issue [Unknown]
  - Pain in extremity [Unknown]
  - Fatigue [Recovered/Resolved]

NARRATIVE: CASE EVENT DATE: 20241111
